FAERS Safety Report 8475944-4 (Version None)
Quarter: 2012Q2

REPORT INFORMATION
  Report Type: 
  Country: None (occurrence: None)
  Receive Date: 20120628
  Receipt Date: 20120618
  Transmission Date: 20120825
  Serious: Yes (Hospitalization)
  Sender: FDA-Public Use
  Company Number: BE-BRISTOL-MYERS SQUIBB COMPANY-16517591

PATIENT
  Age: 55 Year
  Sex: Male

DRUGS (14)
  1. BELATACEPT [Suspect]
     Indication: RENAL TRANSPLANT
     Dosage: 1 MONTHLY
     Route: 042
     Dates: start: 20061004
  2. AGGRENOX [Concomitant]
     Dates: start: 20070422
  3. EZETIMIBE [Concomitant]
     Dates: start: 20090901
  4. ENOXAPARIN [Concomitant]
     Dates: start: 20100417
  5. MOMETASONE FUROATE [Concomitant]
     Dates: start: 20080805
  6. GLIQUIDONE [Concomitant]
     Dates: start: 20061007
  7. MYCOPHENOLIC ACID [Suspect]
     Indication: RENAL TRANSPLANT
     Dates: start: 20070423
  8. REPAGLINIDE [Concomitant]
     Dates: start: 20091007
  9. NYSTATIN [Concomitant]
     Dates: start: 20070416
  10. METFORMIN HCL [Concomitant]
     Dates: start: 20100920
  11. ACETYLCYSTEINE [Concomitant]
     Dates: start: 20080121
  12. SIMVASTATIN [Concomitant]
     Dates: start: 20070115
  13. EZETIMIBE/SIMVASTATIN [Concomitant]
     Dates: start: 20100920
  14. DOVOBET [Concomitant]
     Dates: start: 20080805

REACTIONS (4)
  - OEDEMA PERIPHERAL [None]
  - LYMPHANGITIS [None]
  - CELLULITIS [None]
  - NEUROPATHIC ULCER [None]
